FAERS Safety Report 14457664 (Version 1)
Quarter: 2018Q1

REPORT INFORMATION
  Report Type: Spontaneous
  Country: US (occurrence: US)
  Receive Date: 20180127
  Receipt Date: 20180127
  Transmission Date: 20180509
  Serious: Yes (Hospitalization)
  Sender: FDA-Public Use
  Company Number: None

PATIENT
  Age: 91 Year
  Sex: Male
  Weight: 97.52 kg

DRUGS (2)
  1. BISOPROLOL [Suspect]
     Active Substance: BISOPROLOL
     Indication: CARDIAC FAILURE CONGESTIVE
     Route: 048
     Dates: start: 20170816
  2. DILTIAZEM. [Suspect]
     Active Substance: DILTIAZEM
     Indication: CARDIAC OPERATION
     Route: 048
     Dates: start: 20140512

REACTIONS (3)
  - Cardiac failure congestive [None]
  - Condition aggravated [None]
  - Bradycardia [None]

NARRATIVE: CASE EVENT DATE: 20170824
